FAERS Safety Report 22156804 (Version 2)
Quarter: 2023Q2

REPORT INFORMATION
  Report Type: Spontaneous
  Country: JP (occurrence: JP)
  Receive Date: 20230330
  Receipt Date: 20230419
  Transmission Date: 20230722
  Serious: Yes (Death)
  Sender: FDA-Public Use
  Company Number: JP-PFIZER INC-202200231896

PATIENT
  Age: 81 Year
  Sex: Female
  Weight: 39 kg

DRUGS (2)
  1. VIZIMPRO [Suspect]
     Active Substance: DACOMITINIB
     Indication: Non-small cell lung cancer
     Dosage: 15 MG, DAILY
     Dates: start: 20211012, end: 20211101
  2. VIZIMPRO [Suspect]
     Active Substance: DACOMITINIB
     Dosage: UNK
     Dates: start: 20211108

REACTIONS (5)
  - Neoplasm progression [Fatal]
  - Decreased appetite [Not Recovered/Not Resolved]
  - Paronychia [Not Recovered/Not Resolved]
  - Neoplasm progression [Unknown]
  - Performance status decreased [Unknown]

NARRATIVE: CASE EVENT DATE: 20211108
